FAERS Safety Report 11956844 (Version 4)
Quarter: 2016Q4

REPORT INFORMATION
  Report Type: Report from Study
  Country: PL (occurrence: PL)
  Receive Date: 20160126
  Receipt Date: 20161027
  Transmission Date: 20170206
  Serious: Yes (Death)
  Sender: FDA-Public Use
  Company Number: PL-PFIZER INC-2016035053

PATIENT
  Age: 56 Year
  Sex: Male
  Weight: 98 kg

DRUGS (15)
  1. HEPAREGEN [Concomitant]
     Indication: RHEUMATOID ARTHRITIS
     Dosage: 1.00 MG, 2X/DAY
     Route: 048
     Dates: start: 2014
  2. DIUVER [Concomitant]
     Active Substance: TORSEMIDE
     Indication: HYPERTENSION
     Dosage: 5.00 MG, DAILY
     Route: 048
     Dates: start: 2015
  3. NEBIVOLEK [Concomitant]
     Indication: MYOCARDIAL ISCHAEMIA
     Dosage: 5.00 MG, DAILY
     Route: 048
     Dates: start: 2014
  4. NOLPAZA [Concomitant]
     Active Substance: PANTOPRAZOLE SODIUM
     Indication: PROPHYLAXIS AGAINST GASTROINTESTINAL ULCER
     Dosage: 20.00 MG, DAILY
     Route: 048
     Dates: start: 2014
  5. OSTENIL [Concomitant]
     Indication: RHEUMATOID ARTHRITIS
     Dosage: 70 MG, WEEKLY
     Route: 048
     Dates: start: 2005
  6. ACARD [Concomitant]
     Active Substance: ASPIRIN
     Indication: STENT PLACEMENT
     Dosage: 75 MG, DAILY
     Route: 048
     Dates: start: 201411
  7. SPIRIVA [Concomitant]
     Active Substance: TIOTROPIUM BROMIDE MONOHYDRATE
     Indication: CHRONIC OBSTRUCTIVE PULMONARY DISEASE
     Dosage: 18 (UNITS: OTH) DAILY
     Route: 055
     Dates: start: 201410
  8. METHOTREXATE. [Concomitant]
     Active Substance: METHOTREXATE
     Indication: RHEUMATOID ARTHRITIS
     Dosage: 25 MG, WEEKLY
     Route: 048
     Dates: start: 2011
  9. TOFACITINIB CITRATE [Suspect]
     Active Substance: TOFACITINIB CITRATE
     Dosage: 10 MG, 2X/DAY
     Route: 048
     Dates: end: 20151215
  10. LORISTA [Concomitant]
     Active Substance: LOSARTAN POTASSIUM
     Indication: HYPERTENSION
     Dosage: 100 MG, DAILY
     Route: 048
     Dates: start: 2014
  11. TOFACITINIB CITRATE [Suspect]
     Active Substance: TOFACITINIB CITRATE
     Indication: RHEUMATOID ARTHRITIS
     Dosage: 5 MG, 2X/DAY
     Route: 048
     Dates: start: 20151105
  12. ACIDUM FOLICUM [Concomitant]
     Active Substance: FOLIC ACID
     Indication: RHEUMATOID ARTHRITIS
     Dosage: 15 MG, WEEKLY
     Route: 048
     Dates: start: 2004
  13. MEDROL [Concomitant]
     Active Substance: METHYLPREDNISOLONE
     Indication: RHEUMATOID ARTHRITIS
     Dosage: 4.00 MG, WEEKLY
     Route: 048
     Dates: start: 2004
  14. LECALPIN [Concomitant]
     Indication: HYPERTENSION
     Dosage: 20 MG, DAILY
     Route: 048
     Dates: start: 2014
  15. AREPLEX [Concomitant]
     Active Substance: CLOPIDOGREL BISULFATE
     Indication: STENT PLACEMENT
     Dosage: 75 MG, DAILY
     Route: 048
     Dates: start: 201411

REACTIONS (2)
  - Acute respiratory failure [Fatal]
  - Circulatory collapse [Fatal]

NARRATIVE: CASE EVENT DATE: 20151221
